FAERS Safety Report 13771999 (Version 1)
Quarter: 2017Q3

REPORT INFORMATION
  Report Type: Spontaneous
  Country: US (occurrence: US)
  Receive Date: 20170720
  Receipt Date: 20170720
  Transmission Date: 20171127
  Serious: No
  Sender: FDA-Public Use
  Company Number: US-TEVA-698498USA

PATIENT
  Sex: Female
  Weight: 58.11 kg

DRUGS (1)
  1. FLUCONAZOLE. [Suspect]
     Active Substance: FLUCONAZOLE

REACTIONS (3)
  - Erythema [Unknown]
  - Burning sensation [Unknown]
  - Rash [Unknown]
